FAERS Safety Report 6093329-5 (Version None)
Quarter: 2009Q1

REPORT INFORMATION
  Report Type: 
  Country: None (occurrence: None)
  Receive Date: 20090226
  Receipt Date: 20090216
  Transmission Date: 20090719
  Serious: Yes (Death, Other)
  Sender: FDA-Public Use
  Company Number: DE-BAYER-200830870GPV

PATIENT
  Age: 67 Year
  Sex: Female

DRUGS (5)
  1. CIPROFLOXACIN HCL [Suspect]
     Indication: URINARY TRACT INFECTION
     Route: 065
  2. NOVAMIN [Suspect]
     Indication: ANALGESIA
  3. PRIMAXIN [Concomitant]
     Indication: SEPSIS
     Route: 065
     Dates: end: 20081104
  4. ROCEPHIN [Concomitant]
     Indication: DRUG USE FOR UNKNOWN INDICATION
  5. SOBELIN [Concomitant]
     Indication: DRUG USE FOR UNKNOWN INDICATION

REACTIONS (9)
  - ACUTE RESPIRATORY DISTRESS SYNDROME [None]
  - AGRANULOCYTOSIS [None]
  - APLASTIC ANAEMIA [None]
  - LEUKOPENIA [None]
  - PLEURAL EFFUSION [None]
  - PNEUMONIA [None]
  - RENAL FAILURE ACUTE [None]
  - SEPSIS [None]
  - SYSTEMIC INFLAMMATORY RESPONSE SYNDROME [None]
